FAERS Safety Report 8969178 (Version 1)
Quarter: 2012Q4

REPORT INFORMATION
  Report Type: 
  Country: US (occurrence: US)
  Receive Date: 20121218
  Receipt Date: 20121218
  Transmission Date: 20130627
  Serious: No
  Sender: FDA-Public Use
  Company Number: US-BRISTOL-MYERS SQUIBB COMPANY-16299679

PATIENT
  Age: 56 Year
  Sex: Female

DRUGS (3)
  1. ABILIFY [Suspect]
     Dosage: 5mg:Feb2011,Dose increased:10mg,Mar2011, decreased later:2mg
     Dates: start: 201102
  2. LEXAPRO [Suspect]
  3. KEPPRA [Concomitant]

REACTIONS (3)
  - Swelling [Unknown]
  - Tremor [Unknown]
  - Ammonia increased [Unknown]
